FAERS Safety Report 9730863 (Version 1)
Quarter: 2013Q4

REPORT INFORMATION
  Report Type: Spontaneous
  Country: IL (occurrence: IL)
  Receive Date: 20131205
  Receipt Date: 20131205
  Transmission Date: 20140711
  Serious: Yes (Other)
  Sender: FDA-Public Use
  Company Number: IL-ROCHE-1309001

PATIENT
  Age: 37 Year
  Sex: Female

DRUGS (2)
  1. COPEGUS [Suspect]
     Indication: HEPATITIS C
     Route: 050
     Dates: start: 201309
  2. PEGASYS [Suspect]
     Indication: HEPATITIS
     Route: 050
     Dates: start: 201309

REACTIONS (2)
  - Premature rupture of membranes [Unknown]
  - Exposure via father [Unknown]
